FAERS Safety Report 12393520 (Version 1)
Quarter: 2016Q2

REPORT INFORMATION
  Report Type: Spontaneous
  Country: US (occurrence: None)
  Receive Date: 20160520
  Receipt Date: 20160520
  Transmission Date: 20160815
  Serious: Yes (Other)
  Sender: FDA-Public Use
  Company Number: None

PATIENT
  Age: 49 Year
  Sex: Female
  Weight: 76.2 kg

DRUGS (5)
  1. CONTRAVE [Suspect]
     Active Substance: BUPROPION HYDROCHLORIDE\NALTREXONE HYDROCHLORIDE
     Indication: WEIGHT DECREASED
     Route: 048
  2. MULTIVITAMIN [Concomitant]
     Active Substance: VITAMINS
  3. CELEXA [Concomitant]
     Active Substance: CITALOPRAM HYDROBROMIDE
  4. FISH OIL [Concomitant]
     Active Substance: FISH OIL
  5. DESIPRAMINE [Concomitant]
     Active Substance: DESIPRAMINE

REACTIONS (6)
  - Helplessness [None]
  - Anger [None]
  - Crying [None]
  - Anxiety [None]
  - Suicidal ideation [None]
  - Physical assault [None]

NARRATIVE: CASE EVENT DATE: 20160507
